FAERS Safety Report 7865782-5 (Version None)
Quarter: 2011Q4

REPORT INFORMATION
  Report Type: 
  Country: None (occurrence: None)
  Receive Date: 20111028
  Receipt Date: 20110222
  Transmission Date: 20120403
  Serious: No
  Sender: FDA-Public Use
  Company Number: US-GLAXOSMITHKLINE-A0914892A

PATIENT
  Age: 64 Year
  Sex: Female

DRUGS (12)
  1. PROPRANOLOL [Concomitant]
  2. ACTOS [Concomitant]
  3. NEXIUM [Concomitant]
  4. VENTOLIN [Concomitant]
  5. COZAAR [Concomitant]
  6. POTASSIUM CHLORIDE [Concomitant]
  7. ADVAIR DISKUS 100/50 [Suspect]
     Indication: ASTHMA
     Dosage: 1PUFF TWICE PER DAY
     Route: 055
     Dates: start: 20050201
  8. SINGULAIR [Concomitant]
  9. SIMVASTATIN [Concomitant]
  10. METFORMIN HCL [Concomitant]
  11. LANSOPRAZOLE [Concomitant]
  12. FOSAMAX [Concomitant]

REACTIONS (3)
  - COUGH [None]
  - INCREASED BRONCHIAL SECRETION [None]
  - PRODUCT QUALITY ISSUE [None]
